FAERS Safety Report 24120281 (Version 2)
Quarter: 2024Q4

REPORT INFORMATION
  Report Type: Spontaneous
  Country: US (occurrence: US)
  Receive Date: 20240722
  Receipt Date: 20241008
  Transmission Date: 20250115
  Serious: Yes (Hospitalization)
  Sender: VERTEX
  Company Number: US-VERTEX PHARMACEUTICALS-2024-011638

PATIENT
  Sex: Female

DRUGS (1)
  1. TRIKAFTA [Suspect]
     Active Substance: ELEXACAFTOR\IVACAFTOR\TEZACAFTOR
     Indication: Cystic fibrosis
     Dosage: UNKNOWN DOSAGE REGIMEN
     Route: 048

REACTIONS (3)
  - Malaise [Unknown]
  - Drug level decreased [Unknown]
  - Drug ineffective [Unknown]
